FAERS Safety Report 18365781 (Version 1)
Quarter: 2020Q4

REPORT INFORMATION
  Report Type: Report from Study
  Country: US (occurrence: US)
  Receive Date: 20201009
  Receipt Date: 20201009
  Transmission Date: 20210114
  Serious: No
  Sender: FDA-Public Use
  Company Number: US-TERSERA THERAPEUTICS LLC-US2020GSK092040

PATIENT

DRUGS (3)
  1. DEXAMETHASONE. [Suspect]
     Active Substance: DEXAMETHASONE
     Dosage: UNK
  2. ROLAPITANT HYDROCHLORIDE [Suspect]
     Active Substance: ROLAPITANT
     Dosage: 180 MG, ONCE EVERY 2 WEEKS (2 TABLETS BY MOUTH ONCE EVERY)
     Route: 048
     Dates: start: 20200317
  3. XPOVIO [Suspect]
     Active Substance: SELINEXOR
     Dosage: 80 MG (ONCE A WEEK)
     Dates: start: 20200317

REACTIONS (4)
  - Nausea [Unknown]
  - Drug monitoring procedure not performed [Unknown]
  - Haemoglobin decreased [Unknown]
  - Decreased appetite [Unknown]

NARRATIVE: CASE EVENT DATE: 20200317
